FAERS Safety Report 15127714 (Version 2)
Quarter: 2021Q2

REPORT INFORMATION
  Report Type: Spontaneous
  Country: FR (occurrence: FR)
  Receive Date: 20180710
  Receipt Date: 20210602
  Transmission Date: 20210716
  Serious: Yes (Hospitalization)
  Sender: FDA-Public Use
  Company Number: PHHY2016FR186969

PATIENT
  Age: 79 Year
  Sex: Female
  Weight: 63 kg

DRUGS (4)
  1. LENALIDOMIDE [Suspect]
     Active Substance: LENALIDOMIDE
     Dosage: THE LAST DOSE PRIOR TO THE SAE WAS ADMINISTERED ON 22/FEB/2016LAST DOSE BEFORE SAE ? 20MGROUTE OF AD
     Route: 048
     Dates: start: 20160209
  2. ALLOPURINOL. [Suspect]
     Active Substance: ALLOPURINOL
     Indication: PROPHYLAXIS
     Dosage: UNK
     Route: 065
     Dates: start: 20160217, end: 20160222
  3. LENALIDOMIDE [Suspect]
     Active Substance: LENALIDOMIDE
     Indication: B-CELL LYMPHOMA
     Dosage: 20 MG, UNK
     Route: 048
  4. OBINUTUZUMAB. [Concomitant]
     Active Substance: OBINUTUZUMAB
     Indication: B-CELL LYMPHOMA
     Dosage: 1000 MG, UNK
     Route: 042

REACTIONS (1)
  - Drug reaction with eosinophilia and systemic symptoms [Recovered/Resolved]

NARRATIVE: CASE EVENT DATE: 20160220
